FAERS Safety Report 17265060 (Version 2)
Quarter: 2020Q1

REPORT INFORMATION
  Report Type: Spontaneous
  Country: US (occurrence: US)
  Receive Date: 20200113
  Receipt Date: 20200114
  Transmission Date: 20200409
  Serious: Yes (Other)
  Sender: FDA-Public Use
  Company Number: US-ABBVIE-20K-163-3229492-00

PATIENT
  Age: 26 Year
  Sex: Female

DRUGS (2)
  1. LUPRON DEPOT [Suspect]
     Active Substance: LEUPROLIDE ACETATE
     Indication: PRODUCT USED FOR UNKNOWN INDICATION
     Route: 065
  2. ORILISSA [Suspect]
     Active Substance: ELAGOLIX SODIUM
     Indication: ENDOMETRIOSIS
     Route: 048

REACTIONS (9)
  - Surgery [Unknown]
  - Drug ineffective [Unknown]
  - Emotional distress [Unknown]
  - Crying [Unknown]
  - Hyperhidrosis [Unknown]
  - Hot flush [Unknown]
  - Affective disorder [Unknown]
  - Endometriosis [Unknown]
  - Middle insomnia [Unknown]
